FAERS Safety Report 4989349-1 (Version None)
Quarter: 2006Q2

REPORT INFORMATION
  Report Type: 
  Country: None (occurrence: None)
  Receive Date: 20060426
  Receipt Date: 20060414
  Transmission Date: 20061013
  Serious: Yes (Other)
  Sender: FDA-Public Use
  Company Number: 2006051341

PATIENT
  Sex: Male
  Weight: 5.9 kg

DRUGS (11)
  1. VFEND [Suspect]
     Indication: PNEUMONIA ASPERGILLUS
     Dosage: 100 MG (50 MG, 2 IN 1 D), INTRAVENOUS
     Route: 042
     Dates: start: 20060101
  2. VANCOMYCIN [Concomitant]
  3. PREVACID [Concomitant]
  4. MAGNESIUM SULFATE [Concomitant]
  5. ENALAPRIL MALEATE [Concomitant]
  6. INTERFERON GAMMA-1B (INTERFERON GAMMA) [Concomitant]
  7. BACTRIM [Concomitant]
  8. POLYCITRA (CITRIC ACID, POTASSIUM CITRATE, SODIUM CITRATE) [Concomitant]
  9. FERROUS SULFATE TAB [Concomitant]
  10. CASPOFUNGIN (CASPOFUNGIN) [Concomitant]
  11. CEFEPIME (CEFEPIME) [Concomitant]

REACTIONS (5)
  - BLOOD BICARBONATE DECREASED [None]
  - HYPERNATRAEMIA [None]
  - HYPOKALAEMIA [None]
  - NEPHROPATHY TOXIC [None]
  - RENAL TUBULAR ACIDOSIS [None]
